FAERS Safety Report 7525503-2 (Version None)
Quarter: 2011Q2

REPORT INFORMATION
  Report Type: 
  Country: None (occurrence: None)
  Receive Date: 20110606
  Receipt Date: 20110520
  Transmission Date: 20111010
  Serious: Yes (Other)
  Sender: FDA-Public Use
  Company Number: US-BAYER-201030137NA

PATIENT
  Age: 21 Year
  Sex: Female
  Weight: 45.351 kg

DRUGS (5)
  1. HYOSCYAMINE [Concomitant]
  2. YAZ [Suspect]
     Indication: CONTRACEPTION
     Dosage: UNK
     Dates: start: 20080101, end: 20090101
  3. FLUTICASONE PROPIONATE [Concomitant]
     Dosage: UNK
  4. OXYCODONE HCL AND ACETAMINOPHEN [Concomitant]
     Dosage: 325 MG, UNK
     Route: 048
  5. TUSSIONEX [Concomitant]
     Route: 048

REACTIONS (3)
  - CHOLELITHIASIS [None]
  - CHOLECYSTECTOMY [None]
  - CHOLECYSTITIS CHRONIC [None]
